FAERS Safety Report 23512859 (Version 1)
Quarter: 2024Q1

REPORT INFORMATION
  Report Type: Spontaneous
  Country: US (occurrence: None)
  Receive Date: 20240209
  Receipt Date: 20240209
  Transmission Date: 20240409
  Serious: Yes (Disabling)
  Sender: FDA-Public Use
  Company Number: None

PATIENT
  Age: 71 Year
  Sex: Female
  Weight: 57.15 kg

DRUGS (1)
  1. PAXLOVID [Suspect]
     Active Substance: NIRMATRELVIR\RITONAVIR
     Indication: COVID-19
     Dosage: FREQUENCY : TWICE A DAY;?
     Route: 048
     Dates: start: 20240104, end: 20240105

REACTIONS (5)
  - Drug intolerance [None]
  - Insomnia [None]
  - Eructation [None]
  - Taste disorder [None]
  - Gastrointestinal sounds abnormal [None]

NARRATIVE: CASE EVENT DATE: 20240107
